FAERS Safety Report 14545014 (Version 1)
Quarter: 2018Q1

REPORT INFORMATION
  Report Type: Spontaneous
  Country: US (occurrence: US)
  Receive Date: 20180216
  Receipt Date: 20180216
  Transmission Date: 20180509
  Serious: Yes (Hospitalization)
  Sender: FDA-Public Use
  Company Number: None

PATIENT
  Age: 55 Year
  Sex: Female
  Weight: 67.5 kg

DRUGS (3)
  1. IBUPROFEN GENERIC [Suspect]
     Active Substance: IBUPROFEN
     Indication: PAIN
     Dosage: ?          QUANTITY:1 TABLET(S);?
     Route: 048
     Dates: start: 20180214, end: 20180214
  2. COMBIVENT [Concomitant]
     Active Substance: ALBUTEROL SULFATE\IPRATROPIUM BROMIDE
  3. FLINTSTONES MULTIVITAMIN [Concomitant]

REACTIONS (5)
  - Dizziness [None]
  - Palpitations [None]
  - Dyspnoea [None]
  - Chest pain [None]
  - Disturbance in attention [None]

NARRATIVE: CASE EVENT DATE: 20180214
